FAERS Safety Report 4880908-3 (Version None)
Quarter: 2005Q4

REPORT INFORMATION
  Report Type: 
  Country: None (occurrence: None)
  Receive Date: 20051223
  Receipt Date: 20051102
  Transmission Date: 20060501
  Serious: No
  Sender: FDA-Public Use
  Company Number: 05P-163-0316361-00

PATIENT
  Age: 50 Year
  Sex: Male
  Weight: 77.1115 kg

DRUGS (9)
  1. HUMIRA [Suspect]
     Indication: RHEUMATOID ARTHRITIS
     Dosage: 40 MG, 1 IN 1 2 WK, SUBCUTANEOUS
     Route: 058
     Dates: start: 20050901
  2. GLUCOPHAGE [Concomitant]
  3. GLIBENCLAMIDE [Concomitant]
  4. PREDNISONE [Concomitant]
  5. CLOPIDOGREL BISULFATE [Concomitant]
  6. ASPIRIN [Concomitant]
  7. METHOTREXATE [Concomitant]
  8. FOLIC ACID [Concomitant]
  9. HYDROCODONE BITARTRATE + ACETAMINOPHEN [Concomitant]

REACTIONS (1)
  - TINNITUS [None]
